FAERS Safety Report 4940123-1 (Version None)
Quarter: 2006Q1

REPORT INFORMATION
  Report Type: 
  Country: None (occurrence: None)
  Receive Date: 20060310
  Receipt Date: 20060112
  Transmission Date: 20060701
  Serious: Yes (Hospitalization)
  Sender: FDA-Public Use
  Company Number: JP-ROCHE-432510

PATIENT
  Age: 9 Year
  Sex: Male
  Weight: 22 kg

DRUGS (4)
  1. TAMIFLU [Suspect]
     Route: 048
     Dates: start: 20051227, end: 20051227
  2. CEFZON [Concomitant]
     Route: 048
     Dates: start: 20051227, end: 20051230
  3. SOLITA-T [Concomitant]
     Route: 041
     Dates: start: 20051227, end: 20051227
  4. VEEN D [Concomitant]
     Route: 041
     Dates: start: 20051227, end: 20051228

REACTIONS (2)
  - ABNORMAL BEHAVIOUR [None]
  - DELIRIUM [None]
